FAERS Safety Report 19141037 (Version 1)
Quarter: 2021Q2

REPORT INFORMATION
  Report Type: Spontaneous
  Country: US (occurrence: US)
  Receive Date: 20210415
  Receipt Date: 20210415
  Transmission Date: 20210717
  Serious: Yes (Hospitalization, Other)
  Sender: FDA-Public Use
  Company Number: US-AMGEN-USASP2021053718

PATIENT
  Age: 69 Year
  Sex: Female

DRUGS (1)
  1. PROLIA [Suspect]
     Active Substance: DENOSUMAB
     Indication: OSTEOPOROSIS POSTMENOPAUSAL
     Dosage: EVERY YEAR
     Route: 065
     Dates: start: 2013

REACTIONS (7)
  - Deafness unilateral [Not Recovered/Not Resolved]
  - Off label use [Unknown]
  - Vertigo [Unknown]
  - Balance disorder [Unknown]
  - Sinusitis [Unknown]
  - Foot fracture [Unknown]
  - Fall [Unknown]

NARRATIVE: CASE EVENT DATE: 202101
